FAERS Safety Report 9381219 (Version 1)
Quarter: 2013Q3

REPORT INFORMATION
  Report Type: Spontaneous
  Country: CA (occurrence: CA)
  Receive Date: 20130703
  Receipt Date: 20130703
  Transmission Date: 20140515
  Serious: Yes (Other)
  Sender: FDA-Public Use
  Company Number: CA-ALEXION PHARMACEUTICALS INC.-A201301380

PATIENT
  Age: 24 Year
  Sex: Male
  Weight: 95.24 kg

DRUGS (25)
  1. SOLIRIS 300MG [Suspect]
     Indication: PAROXYSMAL NOCTURNAL HAEMOGLOBINURIA
     Dosage: 600 MG, QW
     Route: 042
     Dates: start: 20130408, end: 20130502
  2. SOLIRIS 300MG [Suspect]
     Dosage: 900 MG, Q2W
     Route: 042
     Dates: start: 20130509
  3. FLUCONAZOLE [Concomitant]
     Indication: PROPHYLAXIS
     Dosage: 400 MG, QD
     Route: 042
     Dates: start: 20130408, end: 20130411
  4. TAZOCIN [Concomitant]
     Indication: PROPHYLAXIS
     Dosage: 4.5 G, QID
     Route: 042
     Dates: start: 20130408, end: 20130411
  5. DAPTOMYCIN [Concomitant]
     Indication: INFECTION
     Dosage: 100 MG, QD
     Route: 042
     Dates: start: 20130403, end: 20130416
  6. VORICONAZOLE [Concomitant]
     Indication: ANTIFUNGAL PROPHYLAXIS
     Dosage: 580 MG, BID
     Route: 042
     Dates: start: 20130415, end: 20130416
  7. VORICONAZOLE [Concomitant]
     Dosage: 380 MG, BID
     Route: 042
     Dates: start: 20130416, end: 201304
  8. SOLUTIONS FOR PARENTERAL NUTRITION [Concomitant]
     Indication: MEDICAL DIET
     Dosage: 1079 ML
     Route: 042
     Dates: start: 20130406, end: 20130414
  9. SOLUTIONS FOR PARENTERAL NUTRITION [Concomitant]
     Indication: ELECTROLYTE SUBSTITUTION THERAPY
  10. MEROPENEM [Concomitant]
     Indication: ANTIBIOTIC PROPHYLAXIS
     Dosage: 1000 MG, TID
     Route: 042
     Dates: start: 20130416, end: 20130422
  11. HYDROMORPHONE [Concomitant]
     Indication: PAIN
     Dosage: 2 MG, PRN
     Route: 058
     Dates: start: 20130402, end: 201304
  12. HYDROMORPHONE [Concomitant]
     Dosage: 2 MG, PRN
     Route: 048
     Dates: start: 20130408
  13. ACETAMINOPHEN [Concomitant]
     Indication: PROPHYLAXIS
     Dosage: 650 MG, SINGLE
     Route: 048
     Dates: start: 20130410, end: 20130410
  14. ACETAMINOPHEN [Concomitant]
     Indication: ANALGESIC THERAPY
  15. ACETAMINOPHEN [Concomitant]
     Indication: PYREXIA
  16. BENADRYL [Concomitant]
     Indication: PROPHYLAXIS
     Dosage: 50 MG, PRN
     Route: 042
     Dates: start: 20130403
  17. ATIVAN [Concomitant]
     Indication: SEDATIVE THERAPY
     Dosage: 1 MG, PRN AT HS
     Route: 048
     Dates: start: 20130402
  18. GRAVOL [Concomitant]
     Indication: PROPHYLAXIS
     Dosage: 50 MG, PRN
     Route: 042
     Dates: start: 20130402
  19. SOLUCORTEF [Concomitant]
     Indication: PROPHYLAXIS
     Dosage: 50 MG, PRN
     Route: 042
     Dates: start: 20130403
  20. HUMULIN R REGULAR [Concomitant]
     Indication: PARENTERAL NUTRITION
     Dosage: QID UPON SLIDING SCALE
     Route: 058
     Dates: start: 20130313, end: 201304
  21. CEFEPIME [Concomitant]
     Indication: SEPTIC SHOCK
     Dosage: 2 G, TID
     Route: 042
     Dates: start: 20130414, end: 20130416
  22. CIPROFLOXACIN [Concomitant]
     Indication: COLITIS
     Dosage: 500 MG, BID
     Route: 048
     Dates: start: 20130429, end: 20130509
  23. CIPROFLOXACIN [Concomitant]
     Indication: SEPTIC SHOCK
  24. PANTOLOC [Concomitant]
     Indication: PROPHYLAXIS
     Dosage: 40 MG, QD
     Route: 048
     Dates: start: 20130509
  25. SERAX [Concomitant]
     Indication: INSOMNIA
     Dosage: 15 MG, PRN AT HS
     Route: 048
     Dates: start: 20130509

REACTIONS (3)
  - Platelet count decreased [Unknown]
  - Haemoglobin decreased [Unknown]
  - Dizziness [Not Recovered/Not Resolved]
